FAERS Safety Report 11422208 (Version 2)
Quarter: 2015Q4

REPORT INFORMATION
  Report Type: Spontaneous
  Country: JP (occurrence: JP)
  Receive Date: 20150827
  Receipt Date: 20151006
  Transmission Date: 20160304
  Serious: Yes (Life-Threatening, Hospitalization, Disabling, Other)
  Sender: FDA-Public Use
  Company Number: PHJP2015JP011721

PATIENT
  Age: 66 Year
  Sex: Female

DRUGS (4)
  1. DEPAS [Concomitant]
     Active Substance: ETIZOLAM
     Indication: ANXIETY
     Dosage: 0.5 MG, BID
     Route: 048
     Dates: start: 20080317
  2. LIPITOR [Concomitant]
     Active Substance: ATORVASTATIN CALCIUM
     Indication: HYPERLIPIDAEMIA
     Dosage: 10 MG, QD
     Route: 048
  3. TASIGNA [Suspect]
     Active Substance: NILOTINIB
     Indication: CHRONIC MYELOID LEUKAEMIA
     Dosage: 300 MG, BID
     Route: 048
     Dates: start: 20110613, end: 20141208
  4. BUFFERIN                           /00009201/ [Concomitant]
     Indication: PROPHYLAXIS
     Dosage: 81 MG, QD
     Route: 048
     Dates: start: 200207, end: 20120628

REACTIONS (19)
  - Muscular weakness [Unknown]
  - Osteomyelitis [Recovered/Resolved with Sequelae]
  - Altered state of consciousness [Unknown]
  - Oedema peripheral [Unknown]
  - Cerebral thrombosis [Unknown]
  - Cerebral infarction [Recovered/Resolved with Sequelae]
  - Dysarthria [Unknown]
  - Peripheral artery stenosis [Recovered/Resolved with Sequelae]
  - Limb discomfort [Unknown]
  - Fall [Unknown]
  - Nausea [Unknown]
  - Skin ulcer [Recovered/Resolved with Sequelae]
  - Dizziness [Unknown]
  - Cerebral arteriosclerosis [Unknown]
  - Thalamus haemorrhage [Recovering/Resolving]
  - Gait disturbance [Unknown]
  - Pain [Unknown]
  - Brain stem infarction [Recovering/Resolving]
  - Gangrene [Unknown]

NARRATIVE: CASE EVENT DATE: 20120627
